FAERS Safety Report 14864591 (Version 2)
Quarter: 2018Q2

REPORT INFORMATION
  Report Type: Report from Study
  Country: US (occurrence: US)
  Receive Date: 20180508
  Receipt Date: 20180521
  Transmission Date: 20180711
  Serious: Yes (Other)
  Sender: FDA-Public Use
  Company Number: US-ACTELION-A-US2018-167038

PATIENT
  Age: 44 Year
  Sex: Female

DRUGS (2)
  1. WARFARIN [Concomitant]
     Active Substance: WARFARIN
  2. VELETRI [Suspect]
     Active Substance: EPOPROSTENOL
     Indication: PULMONARY ARTERIAL HYPERTENSION
     Dosage: 32 NG/KG, PER MIN
     Route: 042

REACTIONS (16)
  - Thyroid mass [Unknown]
  - Catheter site haemorrhage [Unknown]
  - Productive cough [Unknown]
  - White blood cell count increased [Unknown]
  - Sleep disorder [Unknown]
  - Oral fungal infection [Unknown]
  - Feeling cold [Unknown]
  - Pneumonia [Unknown]
  - Ear infection [Unknown]
  - Nasopharyngitis [Unknown]
  - Pain in jaw [Unknown]
  - Withdrawal syndrome [Unknown]
  - Insomnia [Unknown]
  - Body temperature increased [Unknown]
  - Feeling jittery [Unknown]
  - Pyrexia [Unknown]

NARRATIVE: CASE EVENT DATE: 20180426
